FAERS Safety Report 9034618 (Version 2)
Quarter: 2013Q2

REPORT INFORMATION
  Report Type: Spontaneous
  Country: GB (occurrence: None)
  Receive Date: 20130111
  Receipt Date: 20130402
  Transmission Date: 20140414
  Serious: Yes (Disabling, Other)
  Sender: FDA-Public Use
  Company Number: AUR-APL-2013-00047

PATIENT
  Age: 30 Year
  Sex: Male

DRUGS (1)
  1. CITALOPRAM [Suspect]
     Indication: DEPRESSION
     Route: 048
     Dates: start: 20101224, end: 20110707

REACTIONS (20)
  - Sexual dysfunction [None]
  - Migraine [None]
  - Anorgasmia [None]
  - Influenza like illness [None]
  - Anger [None]
  - Screaming [None]
  - Affect lability [None]
  - Depression [None]
  - Psychomotor hyperactivity [None]
  - Paraesthesia [None]
  - Insomnia [None]
  - Feeling abnormal [None]
  - Feeling abnormal [None]
  - Dizziness [None]
  - Impaired work ability [None]
  - Withdrawal syndrome [None]
  - Genital hypoaesthesia [None]
  - Libido decreased [None]
  - Erectile dysfunction [None]
  - Pyrexia [None]
